FAERS Safety Report 11093028 (Version 3)
Quarter: 2015Q2

REPORT INFORMATION
  Report Type: Spontaneous
  Country: US (occurrence: None)
  Receive Date: 20150504
  Receipt Date: 20150616
  Transmission Date: 20150821
  Serious: Yes (Life-Threatening, Hospitalization)
  Sender: FDA-Public Use
  Company Number: ADR-2015-00874

PATIENT
  Age: 26 Year
  Sex: Male

DRUGS (1)
  1. LIORESAL [Suspect]
     Active Substance: BACLOFEN
     Indication: MUSCLE SPASTICITY

REACTIONS (10)
  - Sepsis [None]
  - Autonomic dysreflexia [None]
  - Catheter site related reaction [None]
  - Tremor [None]
  - Muscle spasticity [None]
  - Drug withdrawal syndrome [None]
  - Muscle spasms [None]
  - Pruritus [None]
  - Mental status changes [None]
  - Adhesion [None]

NARRATIVE: CASE EVENT DATE: 20150328
